FAERS Safety Report 5857559-7 (Version None)
Quarter: 2008Q3

REPORT INFORMATION
  Report Type: 
  Country: None (occurrence: None)
  Receive Date: 20080818
  Receipt Date: 20080701
  Transmission Date: 20090109
  Serious: No
  Sender: FDA-Public Use
  Company Number: TPA2008A01035

PATIENT
  Age: 5 Decade
  Sex: Female

DRUGS (2)
  1. ROZEREM [Suspect]
     Indication: INSOMNIA
     Dosage: 8 MG, PER ORAL
     Route: 048
  2. UNKNOWN MEDICATIONS(ALL OTHER THERAPEUTIC PRODUCTS) [Concomitant]

REACTIONS (1)
  - RASH [None]
